FAERS Safety Report 7121493-5 (Version None)
Quarter: 2010Q4

REPORT INFORMATION
  Report Type: 
  Country: None (occurrence: None)
  Receive Date: 20101124
  Receipt Date: 20101115
  Transmission Date: 20110411
  Serious: No
  Sender: FDA-Public Use
  Company Number: US-ELI_LILLY_AND_COMPANY-US201004005161

PATIENT
  Sex: Female

DRUGS (3)
  1. CYMBALTA [Suspect]
     Indication: FIBROMYALGIA
     Dosage: 30 MG, DAILY (1/D)
     Route: 048
     Dates: start: 20100310, end: 20100318
  2. SOMA [Concomitant]
     Dosage: 350 MG, 2/D
     Route: 048
  3. BUPROPION [Concomitant]

REACTIONS (10)
  - ANXIETY [None]
  - CHEST PAIN [None]
  - DIZZINESS [None]
  - HYPERLIPIDAEMIA [None]
  - HYPERTENSION [None]
  - NAUSEA [None]
  - PRESYNCOPE [None]
  - STRESS [None]
  - SUFFOCATION FEELING [None]
  - TACHYCARDIA [None]
